FAERS Safety Report 7358025-2 (Version None)
Quarter: 2011Q1

REPORT INFORMATION
  Report Type: 
  Country: None (occurrence: None)
  Receive Date: 20110307
  Receipt Date: 20100618
  Transmission Date: 20110831
  Serious: No
  Sender: FDA-Public Use
  Company Number: AEUSA201000225

PATIENT
  Age: 70 Year
  Sex: Female
  Weight: 102.0593 kg

DRUGS (10)
  1. SPIRIVA [Concomitant]
  2. ALLOPURINOL [Concomitant]
  3. PROLASTIN-C [Suspect]
     Indication: ALPHA-1 ANTI-TRYPSIN DEFICIENCY
     Dosage: 6240 MG;QW;IV
     Route: 042
     Dates: start: 20100401
  4. SYMBICORT [Concomitant]
  5. LEVOTHYROXINE SODIUM [Concomitant]
  6. PRILOSEC [Concomitant]
  7. METOPROLOL TARTRATE [Concomitant]
  8. OXAZEPAM [Concomitant]
  9. LASIX [Concomitant]
  10. ALBUTEROL [Concomitant]

REACTIONS (1)
  - URINE ODOUR ABNORMAL [None]
